FAERS Safety Report 11692462 (Version 1)
Quarter: 2015Q4

REPORT INFORMATION
  Report Type: Spontaneous
  Country: JP (occurrence: JP)
  Receive Date: 20151103
  Receipt Date: 20151103
  Transmission Date: 20160304
  Serious: Yes (Other)
  Sender: FDA-Public Use
  Company Number: JP-EMD SERONO-8049983

PATIENT
  Age: 27 Year
  Sex: Female

DRUGS (3)
  1. GONAL-F RFF [Suspect]
     Active Substance: FOLLITROPIN
     Indication: OVULATION INDUCTION
     Route: 058
     Dates: start: 20140322, end: 20140415
  2. SEROPHENE [Suspect]
     Active Substance: CLOMIPHENE CITRATE
     Indication: OVULATION INDUCTION
     Route: 048
  3. BUSERECUR [Suspect]
     Active Substance: BUSERELIN ACETATE
     Indication: OVULATION INDUCTION
     Route: 045
     Dates: start: 20140416, end: 20140416

REACTIONS (1)
  - Abortion [Recovered/Resolved]

NARRATIVE: CASE EVENT DATE: 20140606
